FAERS Safety Report 19808287 (Version 1)
Quarter: 2021Q3

REPORT INFORMATION
  Report Type: Spontaneous
  Country: US (occurrence: US)
  Receive Date: 20210908
  Receipt Date: 20210908
  Transmission Date: 20211014
  Serious: Yes (Other)
  Sender: FDA-Public Use
  Company Number: None

PATIENT
  Age: 59 Year
  Sex: Male

DRUGS (1)
  1. REPATHA [Suspect]
     Active Substance: EVOLOCUMAB
     Indication: HYPERLIPIDAEMIA
     Dosage: ?          OTHER FREQUENCY:QMONTH;?
     Route: 058
     Dates: start: 20180126

REACTIONS (3)
  - Dyspnoea [None]
  - Rhinorrhoea [None]
  - Cardiac failure congestive [None]

NARRATIVE: CASE EVENT DATE: 20210907
